FAERS Safety Report 10191365 (Version 1)
Quarter: 2014Q2

REPORT INFORMATION
  Report Type: Spontaneous
  Country: US (occurrence: None)
  Receive Date: 20140522
  Receipt Date: 20140522
  Transmission Date: 20141212
  Serious: Yes (Other)
  Sender: FDA-Public Use
  Company Number: None

PATIENT
  Age: 46 Year
  Sex: Female
  Weight: 71.67 kg

DRUGS (1)
  1. METHYLPHENIDATE ER 54 MG TAB 54 MG KREMERS-URBAN [Suspect]
     Indication: ATTENTION DEFICIT/HYPERACTIVITY DISORDER
     Route: 048
     Dates: start: 20140116, end: 20140505

REACTIONS (7)
  - Heart rate increased [None]
  - Tremor [None]
  - Dizziness [None]
  - Paraesthesia [None]
  - Disturbance in attention [None]
  - Product substitution issue [None]
  - Drug ineffective [None]
